FAERS Safety Report 17029691 (Version 1)
Quarter: 2019Q4

REPORT INFORMATION
  Report Type: Spontaneous
  Country: GB (occurrence: GB)
  Receive Date: 20191114
  Receipt Date: 20191114
  Transmission Date: 20200122
  Serious: Yes (Other)
  Sender: FDA-Public Use
  Company Number: GB-TEVA-2019-GB-1136914

PATIENT
  Age: 19 Year
  Sex: Female
  Weight: 73.02 kg

DRUGS (2)
  1. PRAMIPEXOLE. [Concomitant]
     Active Substance: PRAMIPEXOLE
  2. TRAMADOL HYDROCHLORIDE. [Suspect]
     Active Substance: TRAMADOL HYDROCHLORIDE
     Indication: COSTOCHONDRITIS
     Dosage: 100 MG
     Route: 048
     Dates: start: 201703

REACTIONS (1)
  - Tongue biting [Not Recovered/Not Resolved]
